FAERS Safety Report 5274463-6 (Version None)
Quarter: 2007Q1

REPORT INFORMATION
  Report Type: 
  Country: None (occurrence: None)
  Receive Date: 20070323
  Receipt Date: 20070312
  Transmission Date: 20070707
  Serious: Yes (Hospitalization)
  Sender: FDA-Public Use
  Company Number: DE-PFIZER INC-2007019216

PATIENT
  Sex: Female

DRUGS (3)
  1. LYRICA [Suspect]
     Route: 048
  2. MORPHINE [Concomitant]
  3. ALL OTHER THERAPEUTIC PRODUCTS [Concomitant]

REACTIONS (2)
  - COMA [None]
  - GASTROINTESTINAL INFECTION [None]
